FAERS Safety Report 12437765 (Version 1)
Quarter: 2016Q2

REPORT INFORMATION
  Report Type: Not Available
  Country: None (occurrence: US)
  Receive Date: 20160606
  Receipt Date: 20160606
  Transmission Date: 20160815
  Serious: Yes (Other)
  Sender: FDA-Public Use
  Company Number: US-AKORN-32026

PATIENT
  Age: 28 Year
  Sex: Female

DRUGS (1)
  1. LOPERAMIDE HYDROCHLORIDE ORAL SOLUTION [Suspect]
     Active Substance: LOPERAMIDE

REACTIONS (15)
  - Palpitations [None]
  - Heart rate decreased [None]
  - Blood potassium increased [Recovered/Resolved]
  - Visual impairment [None]
  - Myoclonus [None]
  - Ventricular tachycardia [Recovered/Resolved]
  - Electrocardiogram QRS complex prolonged [Recovered/Resolved]
  - Ventricular tachycardia [None]
  - Overdose [None]
  - Ventricular arrhythmia [None]
  - Cardiac murmur [Recovered/Resolved]
  - Syncope [None]
  - Electrocardiogram QT prolonged [Recovered/Resolved]
  - White blood cell count increased [None]
  - Conduction disorder [None]
